FAERS Safety Report 9417484 (Version 1)
Quarter: 2013Q3

REPORT INFORMATION
  Report Type: Spontaneous
  Country: US (occurrence: US)
  Receive Date: 20130724
  Receipt Date: 20130724
  Transmission Date: 20140515
  Serious: Yes (Other)
  Sender: FDA-Public Use
  Company Number: US-BRISTOL-MYERS SQUIBB COMPANY-18733378

PATIENT
  Age: 67 Year
  Sex: Female

DRUGS (1)
  1. ELIQUIS [Suspect]
     Indication: ATRIAL FIBRILLATION
     Route: 048
     Dates: start: 20130320, end: 20130321

REACTIONS (1)
  - Gastrointestinal haemorrhage [Recovered/Resolved]
